FAERS Safety Report 5164805-4 (Version None)
Quarter: 2006Q4

REPORT INFORMATION
  Report Type: 
  Country: None (occurrence: None)
  Receive Date: 20061205
  Receipt Date: 20061108
  Transmission Date: 20070319
  Serious: Yes (Other)
  Sender: FDA-Public Use
  Company Number: JP-AVENTIS-200613511JP

PATIENT
  Age: 69 Year
  Sex: Female

DRUGS (6)
  1. LASIX [Suspect]
     Indication: OEDEMA
     Route: 048
  2. ALDACTONE [Suspect]
  3. LANSOPRAZOLE [Suspect]
  4. LIVACT                             /00847901/ [Suspect]
  5. SOLDACTONE [Concomitant]
     Route: 051
  6. FULUVAMIDE [Concomitant]
     Route: 051

REACTIONS (1)
  - HEPATIC FUNCTION ABNORMAL [None]
